FAERS Safety Report 8786233 (Version 5)
Quarter: 2012Q4

REPORT INFORMATION
  Report Type: Report from Study
  Country: GR (occurrence: GR)
  Receive Date: 20120914
  Receipt Date: 20121217
  Transmission Date: 20130627
  Serious: Yes (Death, Hospitalization)
  Sender: FDA-Public Use
  Company Number: GR-PFIZER INC-2012223362

PATIENT
  Age: 69 Year
  Sex: Male
  Weight: 73 kg

DRUGS (8)
  1. TEMSIROLIMUS [Suspect]
     Indication: PANCREATIC CANCER METASTATIC
     Dosage: 25 mg,weekly, cyclic
     Route: 042
     Dates: start: 20120719, end: 20120823
  2. GEMZAR [Suspect]
     Indication: PANCREATIC CANCER METASTATIC
     Dosage: 1800 mg, every two weeks,cyclic
     Route: 042
     Dates: start: 20120719, end: 20120816
  3. ZOFRON [Concomitant]
     Indication: PREMEDICATION
     Dosage: 8 mg, every therapy day
     Route: 042
     Dates: start: 20120719, end: 20120823
  4. ZANTAC [Concomitant]
     Indication: PREMEDICATION
     Dosage: 50 mg, every therapy day
     Route: 042
     Dates: start: 20120719, end: 20120823
  5. FENISTIL [Concomitant]
     Indication: PREMEDICATION
     Dosage: 8 mg, every therapy day
     Route: 042
     Dates: start: 20120719, end: 20120823
  6. DEXAMETHASONE [Concomitant]
     Indication: PREMEDICATION
     Dosage: 4 mg, every therapy day
     Route: 042
     Dates: start: 20120719, end: 20120823
  7. HUMALOG [Concomitant]
     Indication: DIABETES MELLITUS
     Dosage: 10 mg, 1x/day
     Dates: end: 20120901
  8. Z-BEC [Concomitant]
     Indication: HYPERTENSION
     Dosage: 10 mg, 1x/day
     Dates: end: 20120901

REACTIONS (1)
  - Lung infection [Fatal]
